FAERS Safety Report 4957388-2 (Version None)
Quarter: 2006Q1

REPORT INFORMATION
  Report Type: 
  Country: None (occurrence: None)
  Receive Date: 20060327
  Receipt Date: 20060317
  Transmission Date: 20060701
  Serious: No
  Sender: FDA-Public Use
  Company Number: TPA2006A00470

PATIENT
  Age: 72 Year
  Sex: Female
  Weight: 49.8957 kg

DRUGS (1)
  1. ROZEREM [Suspect]
     Dosage: SEE IMAGE
     Route: 048

REACTIONS (2)
  - HEADACHE [None]
  - SOMNOLENCE [None]
